FAERS Safety Report 9593918 (Version 6)
Quarter: 2014Q2

REPORT INFORMATION
  Report Type: Spontaneous
  Country: US (occurrence: None)
  Receive Date: 20131002
  Receipt Date: 20140619
  Transmission Date: 20141212
  Serious: Yes (Hospitalization, Other)
  Sender: FDA-Public Use
  Company Number: AUR-APL-2013-08064

PATIENT
  Age: 86 Year
  Sex: Female
  Weight: 55.8 kg

DRUGS (11)
  1. METOPROLOL [Suspect]
     Indication: HYPERTENSION
     Route: 048
     Dates: start: 2013, end: 201309
  2. PROCARDIA XL (NIFEDIPINE) [Suspect]
     Indication: CARDIAC DISORDER
     Dates: start: 20060302
  3. PROCARDIA XL (NIFEDIPINE) [Suspect]
     Indication: HYPERTENSION
     Dates: start: 20060302
  4. ACCUPRIL (QUINAPRIL HYDROCHLORIDE) [Suspect]
     Indication: HYPERTENSION
     Dosage: 25 MG (5 MG AND 20 MG TABLETS)
     Route: 048
  5. ASPIRIN (ACETYLSALICYLIC ACID) [Suspect]
     Indication: CARDIAC DISORDER
     Dosage: 1 D
  6. GLUCOPHAGE [Suspect]
     Indication: DIABETES MELLITUS
     Dosage: 1000 MG (500 MG, 2 IN 1 D)
  7. TOPROL [Suspect]
     Indication: PRODUCT USED FOR UNKNOWN INDICATION
  8. BETAMETHASONE (BETAMETHASONE) [Concomitant]
  9. VITAMIN D (ERGOCALCIFEROL ) [Concomitant]
  10. CALCIUM CITRATE (CALCIUM CITRATE) [Concomitant]
  11. METFORMIN (METFORMIN) [Concomitant]

REACTIONS (7)
  - Malaise [None]
  - Drug interaction [None]
  - Sinus bradycardia [None]
  - Colitis ischaemic [None]
  - Atrioventricular dissociation [None]
  - Blood glucose increased [None]
  - Heart rate decreased [None]
